FAERS Safety Report 19628430 (Version 7)
Quarter: 2022Q3

REPORT INFORMATION
  Report Type: Report from Study
  Country: DE (occurrence: DE)
  Receive Date: 20210728
  Receipt Date: 20220920
  Transmission Date: 20221027
  Serious: Yes (Hospitalization, Other)
  Sender: FDA-Public Use
  Company Number: DE-SHIRE-DE201942189

PATIENT
  Age: 61 Year
  Sex: Male
  Weight: 61 kg

DRUGS (39)
  1. TEDUGLUTIDE [Suspect]
     Active Substance: TEDUGLUTIDE
     Indication: Short-bowel syndrome
     Dosage: 3.1 MILLIGRAM, QD
     Route: 042
     Dates: start: 20170504, end: 20200729
  2. TEDUGLUTIDE [Suspect]
     Active Substance: TEDUGLUTIDE
     Indication: Short-bowel syndrome
     Dosage: 3.1 MILLIGRAM, QD
     Route: 042
     Dates: start: 20170504, end: 20200729
  3. TEDUGLUTIDE [Suspect]
     Active Substance: TEDUGLUTIDE
     Indication: Short-bowel syndrome
     Dosage: 3.1 MILLIGRAM, QD
     Route: 042
     Dates: start: 20170504, end: 20200729
  4. TEDUGLUTIDE [Suspect]
     Active Substance: TEDUGLUTIDE
     Indication: Short-bowel syndrome
     Dosage: 3.1 MILLIGRAM, QD
     Route: 042
     Dates: start: 20170504, end: 20200729
  5. IRON [Concomitant]
     Active Substance: IRON
     Indication: Normochromic normocytic anaemia
     Dosage: UNK
     Route: 042
     Dates: start: 202007, end: 202008
  6. FOLIC ACID [Concomitant]
     Active Substance: FOLIC ACID
     Indication: Normochromic normocytic anaemia
     Dosage: UNK
     Route: 048
     Dates: start: 202007, end: 202008
  7. DOXYCYCLINE [Concomitant]
     Active Substance: DOXYCYCLINE
     Indication: Pemphigoid
     Dosage: 200 MILLIGRAM, QD
     Route: 048
     Dates: start: 20200615
  8. CEFEPIME HYDROCHLORIDE [Concomitant]
     Active Substance: CEFEPIME HYDROCHLORIDE
     Indication: Device related sepsis
     Dosage: 2.38 GRAM, TID
     Route: 048
     Dates: start: 20200723, end: 20200804
  9. METHOTREXATE SODIUM [Concomitant]
     Active Substance: METHOTREXATE SODIUM
     Indication: Pemphigoid
     Dosage: 10 MILLIGRAM, 1/WEEK
     Route: 058
     Dates: start: 201904
  10. PREDNISOLONE [Concomitant]
     Active Substance: PREDNISOLONE
     Indication: Pemphigoid
     Dosage: 20 MILLIGRAM
     Route: 065
     Dates: start: 201904, end: 201907
  11. PREDNISOLONE [Concomitant]
     Active Substance: PREDNISOLONE
     Dosage: 20 MILLIGRAM, QD
     Route: 065
     Dates: start: 2020
  12. CEFUROXIME [Concomitant]
     Active Substance: CEFUROXIME
     Indication: Enterocutaneous fistula
     Dosage: UNK
     Route: 065
     Dates: start: 201812, end: 201812
  13. METRONIDAZOLE [Concomitant]
     Active Substance: METRONIDAZOLE
     Indication: Enterocutaneous fistula
     Dosage: 999 UNK
     Route: 065
     Dates: start: 201812, end: 201812
  14. AMPHOTERICIN B [Concomitant]
     Active Substance: AMPHOTERICIN B
     Indication: Oesophageal candidiasis
     Dosage: 500 MILLIGRAM, TID
     Route: 061
     Dates: start: 20200701
  15. FLUCONAZOLE [Concomitant]
     Active Substance: FLUCONAZOLE
     Indication: Peritonitis
     Dosage: 2000 MILLIGRAM
     Route: 042
     Dates: start: 202006, end: 20200701
  16. FLUCONAZOLE [Concomitant]
     Active Substance: FLUCONAZOLE
     Indication: Oesophageal candidiasis
     Dosage: 200 MILLIGRAM, QD
     Route: 048
     Dates: start: 20170313, end: 20170326
  17. DERMOXIN [CLOBETASOL PROPIONATE] [Concomitant]
     Indication: Pemphigoid
     Dosage: UNK
     Route: 061
     Dates: start: 202003
  18. PANTOPRAZOLE SODIUM [Concomitant]
     Active Substance: PANTOPRAZOLE SODIUM
     Dosage: 40 MILLIGRAM, QD
     Route: 048
  19. Mucofalk [Concomitant]
     Indication: Antidiarrhoeal supportive care
     Dosage: 1 INTERNATIONAL UNIT, TID
     Route: 048
     Dates: end: 201805
  20. OMNIFLORA [Concomitant]
     Indication: Antidiarrhoeal supportive care
     Dosage: 2 INTERNATIONAL UNIT, TID
     Dates: end: 201805
  21. LOPERAMIDE [Concomitant]
     Active Substance: LOPERAMIDE
     Indication: Antidiarrhoeal supportive care
     Dosage: 2 MILLIGRAM, TID
     Route: 048
  22. METOPROLOL [Concomitant]
     Active Substance: METOPROLOL
     Dosage: 47.5 MILLIGRAM, BID
     Route: 048
     Dates: end: 20160629
  23. METOPROLOL [Concomitant]
     Active Substance: METOPROLOL
     Dosage: 24 MILLIGRAM, QD
     Route: 048
     Dates: start: 20160629, end: 2016
  24. CORTISONE [Concomitant]
     Active Substance: CORTISONE
     Indication: Increased appetite
     Dosage: UNK
     Route: 048
     Dates: end: 201612
  25. LEVOCETIRIZINE DIHYDROCHLORIDE [Concomitant]
     Active Substance: LEVOCETIRIZINE DIHYDROCHLORIDE
     Dosage: 5 MILLIGRAM, BID
     Route: 048
  26. ZOFRAN [Concomitant]
     Active Substance: ONDANSETRON HYDROCHLORIDE
     Indication: Nausea
     Dosage: 8 MILLIGRAM, QD
     Route: 060
     Dates: start: 20170313, end: 20170313
  27. NITROFURANTOIN [Concomitant]
     Active Substance: NITROFURANTOIN
     Indication: Urinary tract infection
     Dosage: UNK
     Route: 065
     Dates: start: 201705, end: 201705
  28. LORATADINE [Concomitant]
     Active Substance: LORATADINE
     Indication: Prurigo
     Dosage: 5 MILLIGRAM, BID
     Route: 048
     Dates: start: 201801, end: 201801
  29. Optiderm [Concomitant]
     Indication: Prurigo
     Dosage: UNK
     Route: 061
     Dates: start: 201801, end: 201805
  30. LORATADINE [Concomitant]
     Active Substance: LORATADINE
     Dosage: UNK
     Dates: start: 201805
  31. SELENIUM [Concomitant]
     Active Substance: SELENIUM
     Indication: Selenium deficiency
     Dosage: UNK
     Route: 048
  32. VITAMIN D [Concomitant]
     Active Substance: VITAMIN D NOS
     Indication: Vitamin supplementation
     Dosage: UNK
     Route: 048
  33. ASPIRIN [Concomitant]
     Active Substance: ASPIRIN
     Indication: Cerebrovascular accident
     Dosage: 100 MILLIGRAM, QD
     Route: 048
     Dates: start: 202006
  34. VANCOMYCIN [Concomitant]
     Active Substance: VANCOMYCIN
     Indication: Device related sepsis
     Dosage: 855 MILLIGRAM, TID
     Route: 042
     Dates: start: 20200722, end: 20200804
  35. MEROPENEM ACIC [Concomitant]
     Indication: Device related sepsis
     Dosage: UNK
     Route: 065
     Dates: start: 20200722, end: 20200723
  36. Fuconazole [Concomitant]
     Indication: Peritonitis
     Dosage: UNK
     Route: 065
     Dates: start: 202003, end: 20200403
  37. CASPOFUNGIN [Concomitant]
     Active Substance: CASPOFUNGIN
     Indication: Pemphigoid
     Dosage: UNK
     Route: 058
     Dates: start: 202003
  38. PIPERACILLIN [Concomitant]
     Active Substance: PIPERACILLIN
     Indication: Peritonitis
     Dosage: UNK
     Route: 065
     Dates: start: 202003, end: 20200403
  39. TAZOBACTAM [Concomitant]
     Active Substance: TAZOBACTAM
     Indication: Peritonitis
     Dosage: UNK
     Route: 065
     Dates: start: 202003, end: 20200403

REACTIONS (12)
  - Abnormal loss of weight [Recovered/Resolved]
  - Vascular device infection [Recovered/Resolved]
  - Pemphigoid [Not Recovered/Not Resolved]
  - Intestinal fistula [Recovered/Resolved]
  - Peritonitis [Recovered/Resolved]
  - Impaired healing [Recovered/Resolved]
  - Device dislocation [Recovered/Resolved]
  - Anastomotic complication [Recovered/Resolved]
  - Endophthalmitis [Recovered/Resolved]
  - Nephrolithiasis [Not Recovered/Not Resolved]
  - Anaemia macrocytic [Recovered/Resolved]
  - Muscle spasms [Not Recovered/Not Resolved]

NARRATIVE: CASE EVENT DATE: 20190701
